FAERS Safety Report 8563936-6 (Version None)
Quarter: 2012Q3

REPORT INFORMATION
  Report Type: 
  Country: None (occurrence: None)
  Receive Date: 20120803
  Receipt Date: 20120730
  Transmission Date: 20120928
  Serious: Yes (Other)
  Sender: FDA-Public Use
  Company Number: PHHY2010JP26302

PATIENT
  Age: 79 Year
  Sex: Male

DRUGS (1)
  1. ZOMETA [Suspect]
     Indication: METASTASES TO BONE
     Dosage: 4 MG, UNK
     Route: 042
     Dates: start: 20061225

REACTIONS (5)
  - OSTEONECROSIS OF JAW [None]
  - DENTURE WEARER [None]
  - ORAL BACTERIAL INFECTION [None]
  - BONE DISORDER [None]
  - DECUBITUS ULCER [None]
